FAERS Safety Report 5326328-9 (Version None)
Quarter: 2007Q2

REPORT INFORMATION
  Report Type: 
  Country: None (occurrence: None)
  Receive Date: 20070514
  Receipt Date: 20070514
  Transmission Date: 20071010
  Serious: Yes (Life-Threatening, Hospitalization)
  Sender: FDA-Public Use
  Company Number: None

PATIENT
  Age: 56 Year
  Sex: Female
  Weight: 55.2 kg

DRUGS (2)
  1. CETUXIMAB 500 MG/M2 - BRISTOL MYERS SQUIBB [Suspect]
     Indication: RECTAL CANCER METASTATIC
     Dosage: 800 MG Q2WEEKS INTRAVENOUS
     Route: 042
     Dates: start: 20070430
  2. IRINOTECAN HCL [Suspect]
     Indication: RECTAL CANCER METASTATIC
     Dosage: 240 MG Q2WEEKS INTRAVENOUS
     Route: 042
     Dates: start: 20070430

REACTIONS (6)
  - ABDOMINAL PAIN LOWER [None]
  - COAGULOPATHY [None]
  - HYPOTENSION [None]
  - ILEAL PERFORATION [None]
  - PERITONITIS [None]
  - RENAL FAILURE ACUTE [None]
